FAERS Safety Report 19263455 (Version 1)
Quarter: 2021Q2

REPORT INFORMATION
  Report Type: Spontaneous
  Country: US (occurrence: US)
  Receive Date: 20210517
  Receipt Date: 20210517
  Transmission Date: 20210717
  Serious: No
  Sender: FDA-Public Use
  Company Number: US-BEH-2021131450

PATIENT
  Sex: Male

DRUGS (24)
  1. ZILEUTON. [Concomitant]
     Active Substance: ZILEUTON
     Dosage: 600 MILLIGRAM
  2. ELIQUIS [Concomitant]
     Active Substance: APIXABAN
     Dosage: 5 MILLIGRAM
  3. HIZENTRA [Suspect]
     Active Substance: HUMAN IMMUNOGLOBULIN G
     Indication: HYPOGAMMAGLOBULINAEMIA
     Dosage: 8 GRAM, QOW
     Route: 058
     Dates: start: 2017
  4. IPRATROPIUM/ALBUTEROL [Concomitant]
     Active Substance: ALBUTEROL\IPRATROPIUM
  5. ALPRAZOLAM. [Concomitant]
     Active Substance: ALPRAZOLAM
     Dosage: 0.25 MILLIGRAM
  6. APIXABAN [Concomitant]
     Active Substance: APIXABAN
     Dosage: 5 MILLIGRAM
  7. NAC [ACETYLCYSTEINE] [Concomitant]
     Active Substance: ACETYLCYSTEINE
     Dosage: 60 MILLIGRAM
  8. CEFDINIR. [Concomitant]
     Active Substance: CEFDINIR
     Dosage: 300 MILLIGRAM
  9. PREDNISONE. [Concomitant]
     Active Substance: PREDNISONE
     Dosage: 10 MILLIGRAM
  10. SYMBICORT [Concomitant]
     Active Substance: BUDESONIDE\FORMOTEROL FUMARATE DIHYDRATE
     Dosage: 4.5 MICROGRAM
  11. THEOPHYLLINE [Concomitant]
     Active Substance: THEOPHYLLINE ANHYDROUS
     Dosage: 300 MILLIGRAM
  12. ZYFLO [Concomitant]
     Active Substance: ZILEUTON
     Dosage: 600 MILLIGRAM
  13. METOPROLOL. [Concomitant]
     Active Substance: METOPROLOL
     Indication: CARDIAC DISORDER
     Dosage: 25 MILLIGRAM
  14. CODEINE SULFATE. [Concomitant]
     Active Substance: CODEINE SULFATE
     Dosage: 15 MILLIGRAM
  15. ZOLPIDEM TARTRATE. [Concomitant]
     Active Substance: ZOLPIDEM TARTRATE
     Dosage: 5 MILLIGRAM
  16. DOXAZOSINE [DOXAZOSIN MESILATE] [Concomitant]
     Dosage: 8 MILLIGRAM
  17. OMEPRAZOLE. [Concomitant]
     Active Substance: OMEPRAZOLE
     Dosage: 40 MILLIGRAM
  18. PROAIR HFA [Concomitant]
     Active Substance: ALBUTEROL SULFATE
  19. FLORASTOR [Concomitant]
     Active Substance: SACCHAROMYCES CEREVISIAE
     Dosage: 250 MILLIGRAM
  20. LISINOPRIL. [Concomitant]
     Active Substance: LISINOPRIL
     Indication: CARDIAC DISORDER
     Dosage: 5 MILLIGRAM
  21. DULOXETINE HYDROCHLORIDE. [Concomitant]
     Active Substance: DULOXETINE HYDROCHLORIDE
     Dosage: 30 MILLIGRAM
  22. FINASTERIDE. [Concomitant]
     Active Substance: FINASTERIDE
     Dosage: 5 MILLIGRAM
  23. MONTELUKAST [Concomitant]
     Active Substance: MONTELUKAST SODIUM
     Dosage: 10 MILLIGRAM
  24. ZOSTAVAX [Concomitant]
     Active Substance: VARICELLA-ZOSTER VIRUS STRAIN OKA/MERCK LIVE ANTIGEN

REACTIONS (1)
  - Cardiac disorder [Unknown]
